FAERS Safety Report 15671919 (Version 1)
Quarter: 2018Q4

REPORT INFORMATION
  Report Type: Spontaneous
  Country: JP (occurrence: JP)
  Receive Date: 20181129
  Receipt Date: 20181129
  Transmission Date: 20190205
  Serious: Yes (Hospitalization)
  Sender: FDA-Public Use
  Company Number: JP-EISAI MEDICAL RESEARCH-EC-2018-048411

PATIENT
  Age: 59 Year
  Sex: Female

DRUGS (2)
  1. HALAVEN [Suspect]
     Active Substance: ERIBULIN MESYLATE
     Indication: SOFT TISSUE SARCOMA
     Route: 041
     Dates: start: 20170421, end: 20170525
  2. HALAVEN [Suspect]
     Active Substance: ERIBULIN MESYLATE
     Dosage: UNKNOWN
     Route: 041
     Dates: start: 2017, end: 20170901

REACTIONS (1)
  - Neutropenia [Recovered/Resolved]

NARRATIVE: CASE EVENT DATE: 20170525
